FAERS Safety Report 17555183 (Version 1)
Quarter: 2020Q1

REPORT INFORMATION
  Report Type: Spontaneous
  Country: US (occurrence: US)
  Receive Date: 20200318
  Receipt Date: 20200318
  Transmission Date: 20200409
  Serious: Yes (Other)
  Sender: FDA-Public Use
  Company Number: None

PATIENT
  Age: 39 Year
  Sex: Female
  Weight: 58.95 kg

DRUGS (2)
  1. MICRONUTRIENT [Concomitant]
  2. XIIDRA [Suspect]
     Active Substance: LIFITEGRAST
     Indication: DRY EYE
     Dosage: ?          QUANTITY:5 DROP(S);?
     Route: 047
     Dates: start: 20190313, end: 20200317

REACTIONS (4)
  - Ocular hyperaemia [None]
  - Nasal congestion [None]
  - Eye swelling [None]
  - Nasal discomfort [None]

NARRATIVE: CASE EVENT DATE: 20200317
